FAERS Safety Report 6981120-4 (Version None)
Quarter: 2010Q3

REPORT INFORMATION
  Report Type: 
  Country: None (occurrence: None)
  Receive Date: 20100914
  Receipt Date: 20100901
  Transmission Date: 20110219
  Serious: Yes (Other)
  Sender: FDA-Public Use
  Company Number: US-PFIZER INC-2010096787

PATIENT
  Sex: Male

DRUGS (3)
  1. DILANTIN-125 [Suspect]
     Indication: CONVULSION
     Dosage: 5X100MG AND 1X30MG DAILY
  2. GABAPENTIN [Suspect]
     Indication: CONVULSION
     Dosage: UNK
  3. NEURONTIN [Concomitant]
     Indication: CONVULSION
     Dosage: UNK

REACTIONS (2)
  - CONVULSION [None]
  - HYPERCHLORHYDRIA [None]
